FAERS Safety Report 19218306 (Version 1)
Quarter: 2021Q2

REPORT INFORMATION
  Report Type: Report from Study
  Country: PL (occurrence: PL)
  Receive Date: 20210505
  Receipt Date: 20210505
  Transmission Date: 20210717
  Serious: Yes (Other)
  Sender: FDA-Public Use
  Company Number: PL-CELGENEUS-POL-20200304945

PATIENT
  Age: 57 Year
  Sex: Female

DRUGS (6)
  1. HASCOVIR [Concomitant]
     Indication: PROPHYLAXIS
     Dosage: 800 MILLIGRAM
     Route: 048
     Dates: start: 20190127
  2. MILURIT [Concomitant]
     Active Substance: ALLOPURINOL
     Indication: PROPHYLAXIS
     Dosage: 100 MILLIGRAM
     Route: 048
     Dates: start: 20170901
  3. VIGANTOL [Concomitant]
     Indication: PROPHYLAXIS
     Dosage: 2 DROPS DAILY
     Route: 048
     Dates: start: 20190127
  4. CALPEROS [Concomitant]
     Indication: PROPHYLAXIS
     Dosage: 1 GRAM
     Route: 048
     Dates: start: 20181101
  5. LENALIDOMIDE [Suspect]
     Active Substance: LENALIDOMIDE
     Indication: PLASMA CELL MYELOMA
     Route: 048
     Dates: start: 20190227, end: 20210406
  6. LETROX [Concomitant]
     Active Substance: LEVOTHYROXINE SODIUM
     Indication: THERAPEUTIC PROCEDURE
     Dosage: 100 MILLIGRAM
     Route: 054

REACTIONS (1)
  - Meningioma [Not Recovered/Not Resolved]

NARRATIVE: CASE EVENT DATE: 20200310
